FAERS Safety Report 6316593-3 (Version None)
Quarter: 2009Q3

REPORT INFORMATION
  Report Type: 
  Country: None (occurrence: None)
  Receive Date: 20090820
  Receipt Date: 20090812
  Transmission Date: 20100115
  Serious: Yes (Other)
  Sender: FDA-Public Use
  Company Number: GB-TEVA-205905ISR

PATIENT
  Age: 13 Year
  Sex: Male

DRUGS (2)
  1. PREDNISOLONE [Suspect]
     Indication: HEART TRANSPLANT
  2. TACROLIMUS [Suspect]
     Indication: HEART TRANSPLANT

REACTIONS (1)
  - BURKITT'S LYMPHOMA [None]
